FAERS Safety Report 6401399-7 (Version None)
Quarter: 2009Q4

REPORT INFORMATION
  Report Type: 
  Country: None (occurrence: None)
  Receive Date: 20091015
  Receipt Date: 20070307
  Transmission Date: 20100525
  Serious: Yes (Disabling)
  Sender: FDA-Public Use
  Company Number: US-ASTRAZENECA-2006UW11000

PATIENT
  Weight: 109.8 kg

DRUGS (11)
  1. SEROQUEL [Suspect]
     Dosage: 25 TO 800 MG
     Route: 048
     Dates: start: 20010125
  2. ZYPREXA [Suspect]
     Dosage: 5 TO 20 MG
     Route: 048
     Dates: start: 20010115, end: 20050201
  3. DILANTIN [Concomitant]
     Dosage: 100 TO 600 MG
     Route: 048
     Dates: start: 20010416
  4. RISPERDAL [Concomitant]
     Route: 048
     Dates: start: 20010416
  5. HYDROCHLOROTHIAZIDE [Concomitant]
     Route: 048
     Dates: start: 20060425
  6. LISINOPRIL [Concomitant]
     Route: 048
     Dates: start: 20060425
  7. STEROID [Concomitant]
     Route: 048
     Dates: start: 20010101
  8. METFORMIN HYDROCHLORIDE [Concomitant]
     Route: 048
     Dates: start: 20060425
  9. FLEXERIL [Concomitant]
     Indication: MUSCLE SPASMS
     Route: 048
     Dates: start: 20060425
  10. MOTRIN [Concomitant]
     Indication: PAIN
     Dosage: 800 MG EVERY EIGHT HOURS AS NEEDED
     Route: 048
     Dates: start: 20060425
  11. DEPAKOTE [Concomitant]
     Route: 048
     Dates: start: 20010115

REACTIONS (1)
  - ILL-DEFINED DISORDER [None]
